FAERS Safety Report 16526851 (Version 2)
Quarter: 2019Q3

REPORT INFORMATION
  Report Type: Report from Study
  Country: US (occurrence: US)
  Receive Date: 20190703
  Receipt Date: 20190709
  Transmission Date: 20191004
  Serious: Yes (Hospitalization)
  Sender: FDA-Public Use
  Company Number: US-CELGENEUS-USA-20190700248

PATIENT
  Age: 71 Year
  Sex: Male

DRUGS (3)
  1. AZACITIDINE. [Suspect]
     Active Substance: AZACITIDINE
     Indication: NON-SMALL CELL LUNG CANCER METASTATIC
     Dosage: 40 MILLIGRAM/SQ. METER
     Route: 058
     Dates: start: 20190619, end: 20190623
  2. ENTINOSTAT [Suspect]
     Active Substance: ENTINOSTAT
     Indication: NON-SMALL CELL LUNG CANCER METASTATIC
     Dosage: 5 MILLIGRAM
     Route: 048
     Dates: start: 20190621, end: 20190621
  3. NIVOLUMAB [Suspect]
     Active Substance: NIVOLUMAB
     Indication: NON-SMALL CELL LUNG CANCER METASTATIC
     Dosage: 240 MILLIGRAM
     Route: 041
     Dates: start: 20190619, end: 20190619

REACTIONS (1)
  - Dyspnoea [Recovered/Resolved]

NARRATIVE: CASE EVENT DATE: 20190623
